FAERS Safety Report 11700181 (Version 2)
Quarter: 2015Q4

REPORT INFORMATION
  Report Type: Spontaneous
  Country: US (occurrence: US)
  Receive Date: 20151105
  Receipt Date: 20151109
  Transmission Date: 20160304
  Serious: Yes (Other)
  Sender: FDA-Public Use
  Company Number: US-DRREDDYS-USA/USA/15/0053757

PATIENT
  Age: 16 Year
  Sex: Female
  Weight: 49.89 kg

DRUGS (1)
  1. ZENATANE [Suspect]
     Active Substance: ISOTRETINOIN
     Indication: ACNE
     Route: 048
     Dates: start: 20150728, end: 20151028

REACTIONS (1)
  - Mood altered [Not Recovered/Not Resolved]

NARRATIVE: CASE EVENT DATE: 201510
